FAERS Safety Report 9373596 (Version 1)
Quarter: 2013Q2

REPORT INFORMATION
  Report Type: Spontaneous
  Country: BH (occurrence: BH)
  Receive Date: 20130627
  Receipt Date: 20130627
  Transmission Date: 20140414
  Serious: Yes (Other)
  Sender: FDA-Public Use
  Company Number: PHHY2013BH061694

PATIENT
  Age: 26 Year
  Sex: Female

DRUGS (4)
  1. DIGOXIN [Suspect]
     Indication: TACHYCARDIA FOETAL
     Dosage: 0.25 MG, 8 HOURLY
  2. DIGOXIN [Suspect]
     Dosage: 0.25 MG, QD
  3. DIGOXIN [Suspect]
     Dosage: 0.5 MG, BID
  4. DIGOXIN [Suspect]
     Dosage: 0.25 MG, BID

REACTIONS (7)
  - Premature delivery [Unknown]
  - Cardioactive drug level increased [Unknown]
  - Toxicity to various agents [Unknown]
  - Nausea [Unknown]
  - Vomiting [Unknown]
  - Abdominal pain upper [Unknown]
  - Maternal exposure during pregnancy [Unknown]
